FAERS Safety Report 11028597 (Version 2)
Quarter: 2015Q2

REPORT INFORMATION
  Report Type: Spontaneous
  Country: US (occurrence: US)
  Receive Date: 20150414
  Receipt Date: 20150525
  Transmission Date: 20150821
  Serious: No
  Sender: FDA-Public Use
  Company Number: US-JNJFOC-20140518379

PATIENT
  Sex: Female

DRUGS (1)
  1. ORTHO TRI CYCLEN LO [Suspect]
     Active Substance: ETHINYL ESTRADIOL\NORGESTIMATE
     Indication: OLIGOMENORRHOEA
     Route: 048

REACTIONS (4)
  - Uterine spasm [Unknown]
  - Off label use [Unknown]
  - Menorrhagia [Not Recovered/Not Resolved]
  - Withdrawal bleed [Not Recovered/Not Resolved]
